FAERS Safety Report 22301259 (Version 2)
Quarter: 2025Q4

REPORT INFORMATION
  Report Type: Spontaneous
  Country: US (occurrence: US)
  Receive Date: 20230509
  Receipt Date: 20251118
  Transmission Date: 20260117
  Serious: No
  Sender: SANOFI AVENTIS
  Company Number: US-SA-SAC20230508000331

PATIENT
  Age: 74 Year
  Sex: Female
  Weight: 61.23 kg

DRUGS (6)
  1. DUPIXENT [Suspect]
     Active Substance: DUPILUMAB
     Indication: Dermatitis atopic
     Dosage: 300 MG, QOW
     Route: 058
     Dates: start: 20230307
  2. DUPIXENT [Suspect]
     Active Substance: DUPILUMAB
  3. TRIAMCINOLONE ACETONIDE [Concomitant]
     Active Substance: TRIAMCINOLONE ACETONIDE
  4. CODEINE PHOSPHATE [Concomitant]
     Active Substance: CODEINE PHOSPHATE
  5. SULFACETAMIDE [Concomitant]
     Active Substance: SULFACETAMIDE
  6. BUTORPHANOL [Concomitant]
     Active Substance: BUTORPHANOL

REACTIONS (6)
  - Alopecia [Not Recovered/Not Resolved]
  - Weight decreased [Unknown]
  - Skin discomfort [Not Recovered/Not Resolved]
  - Skin exfoliation [Unknown]
  - Pruritus [Not Recovered/Not Resolved]
  - Pain of skin [Not Recovered/Not Resolved]

NARRATIVE: CASE EVENT DATE: 20230101
